FAERS Safety Report 15706083 (Version 1)
Quarter: 2018Q4

REPORT INFORMATION
  Report Type: Spontaneous
  Country: IT (occurrence: IT)
  Receive Date: 20181210
  Receipt Date: 20181210
  Transmission Date: 20190205
  Serious: Yes (Hospitalization)
  Sender: FDA-Public Use
  Company Number: IT-TEVA-2018-IT-984480

PATIENT
  Age: 91 Year
  Sex: Female

DRUGS (7)
  1. FUROSEMIDE. [Suspect]
     Active Substance: FUROSEMIDE
     Indication: HYPERTENSION
     Dosage: 4 DOSAGE FORMS DAILY;
     Route: 048
     Dates: start: 20180101, end: 20181007
  2. EPREX [Concomitant]
     Active Substance: ERYTHROPOIETIN
  3. NITROCOR [Concomitant]
     Active Substance: NITROGLYCERIN
  4. PEPTAZOL [Concomitant]
     Active Substance: PANTOPRAZOLE SODIUM
  5. AZOPT 10 MG/ML EYE DROPS, SUSPENSION [Concomitant]
  6. ZAROXOLYN [Suspect]
     Active Substance: METOLAZONE
     Indication: OEDEMA
     Dosage: 1.5 DOSAGE FORMS DAILY;
     Route: 048
     Dates: start: 20181004, end: 20181007
  7. CARDICOR [Concomitant]
     Active Substance: BISOPROLOL

REACTIONS (2)
  - Presyncope [Unknown]
  - Hypokalaemia [Unknown]

NARRATIVE: CASE EVENT DATE: 20181007
